FAERS Safety Report 4619199-7 (Version None)
Quarter: 2005Q1

REPORT INFORMATION
  Report Type: 
  Country: None (occurrence: None)
  Receive Date: 20050325
  Receipt Date: 20050316
  Transmission Date: 20050727
  Serious: Yes (Other)
  Sender: FDA-Public Use
  Company Number: NO-JNJFOC-20050105091

PATIENT
  Sex: Male

DRUGS (9)
  1. REMICADE [Suspect]
     Indication: ARTHRITIS
     Route: 042
  2. REMICADE [Suspect]
     Route: 042
  3. NEXIUM [Concomitant]
     Route: 049
  4. FOSAMAX [Concomitant]
     Indication: OSTEOPOROSIS
     Route: 049
  5. PLAQUENIL [Concomitant]
     Indication: ARTHRITIS
     Route: 049
  6. COZAAR [Concomitant]
     Route: 049
  7. COZAAR [Concomitant]
     Indication: HYPERTENSION
     Route: 049
  8. TENORMIN [Concomitant]
     Indication: HYPERTENSION
     Route: 049
  9. CALCIUM GLUCONATE [Concomitant]
     Indication: OSTEOPOROSIS
     Route: 049

REACTIONS (10)
  - ALOPECIA [None]
  - METASTASIS [None]
  - NEOPLASM [None]
  - NEPHROTIC SYNDROME [None]
  - PNEUMONIA [None]
  - PRURITUS GENERALISED [None]
  - RENAL FAILURE CHRONIC [None]
  - SINUSITIS [None]
  - SQUAMOUS CELL CARCINOMA [None]
  - TONGUE NEOPLASM MALIGNANT STAGE UNSPECIFIED [None]
